FAERS Safety Report 23394359 (Version 1)
Quarter: 2024Q1

REPORT INFORMATION
  Report Type: Report from Study
  Country: CN (occurrence: CN)
  Receive Date: 20240111
  Receipt Date: 20240111
  Transmission Date: 20240410
  Serious: Yes (Hospitalization)
  Sender: FDA-Public Use
  Company Number: CN-BEIGENE-BGN-2023-000769

PATIENT
  Age: 62 Year
  Sex: Male
  Weight: 66 kg

DRUGS (3)
  1. OCIPERLIMAB [Suspect]
     Active Substance: OCIPERLIMAB
     Indication: Non-small cell lung cancer metastatic
     Dosage: 900 MG, Q3W
     Route: 042
     Dates: start: 20211028, end: 20230428
  2. PEMETREXED [Suspect]
     Active Substance: PEMETREXED
     Indication: Non-small cell lung cancer metastatic
     Dosage: 500 MG/M2, Q3W
     Route: 042
     Dates: start: 20211028, end: 20230203
  3. TISLELIZUMAB [Suspect]
     Active Substance: TISLELIZUMAB
     Indication: Non-small cell lung cancer metastatic
     Dosage: 200 MG, Q3W
     Route: 042
     Dates: start: 20211028, end: 20230428

REACTIONS (1)
  - Acute myocardial infarction [Not Recovered/Not Resolved]

NARRATIVE: CASE EVENT DATE: 20230115
